FAERS Safety Report 7979059-0 (Version None)
Quarter: 2011Q4

REPORT INFORMATION
  Report Type: 
  Country: None (occurrence: None)
  Receive Date: 20111214
  Receipt Date: 20111212
  Transmission Date: 20120403
  Serious: No
  Sender: FDA-Public Use
  Company Number: US-PFIZER INC-2011131860

PATIENT
  Sex: Female
  Weight: 11 kg

DRUGS (3)
  1. GENOTROPIN [Suspect]
     Indication: GROWTH HORMONE DEFICIENCY
     Dosage: 0.6 MG, 1X/DAY, 6DAY/WEEK
     Route: 058
     Dates: start: 20110528, end: 20110614
  2. GENOTROPIN [Suspect]
     Indication: SMALL FOR DATES BABY
  3. GENOTROPIN [Suspect]
     Indication: BODY HEIGHT BELOW NORMAL

REACTIONS (4)
  - NASAL CONGESTION [None]
  - RASH [None]
  - BURNING SENSATION [None]
  - URTICARIA [None]
